FAERS Safety Report 4461891-1 (Version None)
Quarter: 2004Q3

REPORT INFORMATION
  Report Type: 
  Country: None (occurrence: None)
  Receive Date: 20040929
  Receipt Date: 20031112
  Transmission Date: 20050211
  Serious: No
  Sender: FDA-Public Use
  Company Number: US-GLAXOSMITHKLINE-A0439414A

PATIENT
  Age: 62 Year
  Sex: Female

DRUGS (5)
  1. SEREVENT [Suspect]
     Indication: ASTHMA
     Dosage: 1PUFF TWICE PER DAY
     Route: 055
  2. ADVAIR DISKUS 100/50 [Suspect]
     Route: 055
  3. ATROVENT [Concomitant]
  4. COMBIVIR [Concomitant]
  5. NEXIUM [Concomitant]

REACTIONS (1)
  - RESPIRATORY TRACT IRRITATION [None]
